FAERS Safety Report 6603958-5 (Version None)
Quarter: 2010Q1

REPORT INFORMATION
  Report Type: 
  Country: None (occurrence: None)
  Receive Date: 20100226
  Receipt Date: 20090326
  Transmission Date: 20100710
  Serious: No
  Sender: FDA-Public Use
  Company Number: A0775646A

PATIENT
  Age: 28 Year
  Sex: Male

DRUGS (2)
  1. LAMICTAL CD [Suspect]
     Indication: BIPOLAR DISORDER
     Dosage: 25MG PER DAY
     Route: 048
     Dates: start: 20090301, end: 20090326
  2. SEROQUEL [Concomitant]

REACTIONS (1)
  - RASH [None]
